FAERS Safety Report 12622932 (Version 1)
Quarter: 2016Q3

REPORT INFORMATION
  Report Type: Spontaneous
  Country: RU (occurrence: RU)
  Receive Date: 20160804
  Receipt Date: 20160804
  Transmission Date: 20161109
  Serious: Yes (Other)
  Sender: FDA-Public Use
  Company Number: RU-BAYER-2016-147001

PATIENT
  Age: 47 Year
  Sex: Female

DRUGS (1)
  1. YAZ [Suspect]
     Active Substance: DROSPIRENONE\ETHINYL ESTRADIOL
     Dosage: UNK
     Route: 048

REACTIONS (9)
  - Cervical dysplasia [None]
  - Abdominal distension [None]
  - Abdominal pain lower [None]
  - Abnormal withdrawal bleeding [None]
  - Weight increased [None]
  - Breast pain [None]
  - Metrorrhagia [None]
  - Vaginal haemorrhage [None]
  - Back pain [None]
